FAERS Safety Report 12125102 (Version 1)
Quarter: 2016Q1

REPORT INFORMATION
  Report Type: Report from Study
  Country: CA (occurrence: CA)
  Receive Date: 20160229
  Receipt Date: 20160229
  Transmission Date: 20160526
  Serious: Yes (Other)
  Sender: FDA-Public Use
  Company Number: CA-ROCHE-1717891

PATIENT
  Age: 72 Year
  Sex: Female

DRUGS (14)
  1. ESBRIET [Suspect]
     Active Substance: PIRFENIDONE
     Indication: IDIOPATHIC PULMONARY FIBROSIS
     Route: 048
     Dates: start: 20141208
  2. BISOPROLOL [Concomitant]
     Active Substance: BISOPROLOL
  3. TEMAZEPAM. [Concomitant]
     Active Substance: TEMAZEPAM
  4. METFORMIN [Concomitant]
     Active Substance: METFORMIN HYDROCHLORIDE
     Route: 065
  5. CHOLESTYRAMINE. [Concomitant]
     Active Substance: CHOLESTYRAMINE
     Route: 065
  6. NPH INSULIN [Concomitant]
     Active Substance: INSULIN BEEF
     Route: 065
  7. HYDROCHLOROTHIAZIDE. [Concomitant]
     Active Substance: HYDROCHLOROTHIAZIDE
  8. CARBAMAZEPINE. [Concomitant]
     Active Substance: CARBAMAZEPINE
  9. ESBRIET [Suspect]
     Active Substance: PIRFENIDONE
     Route: 048
     Dates: start: 20141219
  10. EPINEPHRINE. [Concomitant]
     Active Substance: EPINEPHRINE
     Route: 065
  11. HUMULIN R [Concomitant]
     Active Substance: INSULIN HUMAN
     Route: 065
  12. LETROZOLE. [Concomitant]
     Active Substance: LETROZOLE
  13. ESBRIET [Suspect]
     Active Substance: PIRFENIDONE
     Route: 048
     Dates: start: 20141226
  14. ATORVASTATIN [Concomitant]
     Active Substance: ATORVASTATIN

REACTIONS (2)
  - Tremor [Not Recovered/Not Resolved]
  - Pain in extremity [Not Recovered/Not Resolved]

NARRATIVE: CASE EVENT DATE: 201602
